FAERS Safety Report 5742596-3 (Version None)
Quarter: 2008Q2

REPORT INFORMATION
  Report Type: 
  Country: None (occurrence: None)
  Receive Date: 20080515
  Receipt Date: 20080505
  Transmission Date: 20081010
  Serious: Yes (Hospitalization)
  Sender: FDA-Public Use
  Company Number: 2006-01673

PATIENT
  Age: 64 Year
  Sex: Female

DRUGS (6)
  1. VELCADE [Suspect]
     Indication: MULTIPLE MYELOMA
     Dosage: 2.00 MG
     Dates: start: 20050926, end: 20051212
  2. DEXAMETHASONE TAB [Suspect]
     Indication: MULTIPLE MYELOMA
     Dosage: 40.00 MG
     Dates: start: 20050626, end: 20051005
  3. CYCLOPHOSPHAMIDE [Suspect]
     Indication: MULTIPLE MYELOMA
     Dates: start: 20060220, end: 20060310
  4. ETOPOSIDE [Suspect]
     Indication: MULTIPLE MYELOMA
     Dates: start: 20060220, end: 20060310
  5. CISPLATIN [Suspect]
     Indication: MULTIPLE MYELOMA
     Dates: start: 20060220, end: 20060310
  6. MELPHALAN(MELPHALAN) VIAL [Suspect]
     Indication: MULTIPLE MYELOMA
     Dosage: 250.00 MG
     Dates: start: 20060317, end: 20060317

REACTIONS (6)
  - DEHYDRATION [None]
  - DRUG TOXICITY [None]
  - GENERAL PHYSICAL HEALTH DETERIORATION [None]
  - MUCOSAL INFLAMMATION [None]
  - PRURITUS [None]
  - SEPSIS [None]
